FAERS Safety Report 13086288 (Version 2)
Quarter: 2017Q2

REPORT INFORMATION
  Report Type: Spontaneous
  Country: US (occurrence: US)
  Receive Date: 20170104
  Receipt Date: 20170404
  Transmission Date: 20170830
  Serious: No
  Sender: FDA-Public Use
  Company Number: US-ALLERGAN-1678765US

PATIENT
  Age: 26 Year
  Sex: Female
  Weight: 68.48 kg

DRUGS (4)
  1. LITHIUM CARBONATE. [Concomitant]
     Active Substance: LITHIUM CARBONATE
     Indication: PRODUCT USED FOR UNKNOWN INDICATION
     Dosage: 300 MG, BID
     Route: 048
  2. SEROQUEL [Concomitant]
     Active Substance: QUETIAPINE FUMARATE
     Indication: PRODUCT USED FOR UNKNOWN INDICATION
     Dosage: 50 MG, QHS
     Route: 048
  3. SAPHRIS [Concomitant]
     Active Substance: ASENAPINE MALEATE
     Indication: PRODUCT USED FOR UNKNOWN INDICATION
     Dosage: 20 MG, QD
     Route: 048
  4. VRAYLAR [Suspect]
     Active Substance: CARIPRAZINE
     Indication: BIPOLAR DISORDER
     Dosage: 1.5 MG, QD
     Route: 048
     Dates: start: 20161103, end: 20161109

REACTIONS (4)
  - Tremor [Recovered/Resolved]
  - Nausea [Recovered/Resolved]
  - Nervousness [Recovered/Resolved]
  - Dizziness [Recovered/Resolved]

NARRATIVE: CASE EVENT DATE: 201611
